FAERS Safety Report 11813219 (Version 1)
Quarter: 2015Q4

REPORT INFORMATION
  Report Type: Spontaneous
  Country: US (occurrence: None)
  Receive Date: 20151207
  Receipt Date: 20151207
  Transmission Date: 20160305
  Serious: Yes (Hospitalization, Other)
  Sender: FDA-Public Use
  Company Number: US-ALSI-201500309

PATIENT
  Age: 18 Year
  Sex: Female

DRUGS (1)
  1. NITROUS OXIDE. [Suspect]
     Active Substance: NITROUS OXIDE
     Indication: SUBSTANCE USE
     Dosage: RESPIRATORY
     Route: 055

REACTIONS (7)
  - Muscular weakness [None]
  - Myelopathy [None]
  - Areflexia [None]
  - Peroneal nerve palsy [None]
  - Ataxia [None]
  - Drug abuse [None]
  - Hypoaesthesia [None]
